FAERS Safety Report 4786758-0 (Version None)
Quarter: 2005Q3

REPORT INFORMATION
  Report Type: 
  Country: None (occurrence: None)
  Receive Date: 20050930
  Receipt Date: 20050919
  Transmission Date: 20060218
  Serious: Yes (Other)
  Sender: FDA-Public Use
  Company Number: 2005132377

PATIENT
  Age: 64 Year
  Sex: Male
  Weight: 110.0426 kg

DRUGS (28)
  1. HEPARIN SODIUM [Suspect]
     Indication: CORONARY ARTERY SURGERY
     Dosage: (63000 I.U., 3 IN 1 D), INTRAVENOUS
     Route: 042
     Dates: start: 20050308, end: 20050308
  2. ASPIRIN [Suspect]
     Indication: PROPHYLAXIS
     Dosage: 325 MG ( 1 IN 1 D), ORAL
     Route: 048
     Dates: start: 20050304, end: 20050306
  3. NICARDIPINE HCL [Suspect]
     Indication: PROCEDURAL HYPERTENSION
     Dosage: 0.416 MG, INTRAVENOUS
     Route: 042
     Dates: start: 20050308
  4. LOVENOX [Suspect]
     Indication: PROPHYLAXIS
     Dosage: 240 MG (120 MG, 1 IN 12 HR), SUBCUTANEOUS
     Route: 058
     Dates: start: 20050304, end: 20050307
  5. LOVENOX [Suspect]
     Indication: THROMBOSIS PROPHYLAXIS
     Dosage: 240 MG (120 MG, 1 IN 12 HR), SUBCUTANEOUS
     Route: 058
     Dates: start: 20050304, end: 20050307
  6. LOPRESSOR [Concomitant]
  7. LORTAB [Concomitant]
  8. ALUMINUM HYDROXIDE AND MAGNESIUM TRISILICATE [Concomitant]
  9. IMDUR [Concomitant]
  10. NTG (GLYCERYL TRINITRATE) [Concomitant]
  11. MUCOMYST [Concomitant]
  12. BREVIBLOC [Concomitant]
  13. MUPIROCIN (MUPIROCIN) [Concomitant]
  14. MORPHINE (ALLOPURINOL) [Concomitant]
  15. ZYLOPRIM [Concomitant]
  16. INTEGRILIN [Concomitant]
  17. LASIX [Concomitant]
  18. SODIUM BICARBONATE IN PLASTIC CONTAINER [Concomitant]
  19. ANCEF [Concomitant]
  20. KCL (POTASSIUM CHLORIDE) [Concomitant]
  21. INSULIN [Concomitant]
  22. SUFENTA [Concomitant]
  23. VERSED (MIDAZOOLAM HYDROCHLORIDE) [Concomitant]
  24. VECURONIUM (VECURONIUM) [Concomitant]
  25. SUCCINYLCHOLINE CHLORIDE [Concomitant]
  26. LIDOCAINE HCL INJ [Concomitant]
  27. MANNITOL [Concomitant]
  28. AMICAR [Concomitant]

REACTIONS (7)
  - BLOOD PRESSURE SYSTOLIC DECREASED [None]
  - BLOODY DISCHARGE [None]
  - CORONARY ARTERY SURGERY [None]
  - HAEMORRHAGE [None]
  - HEART RATE [None]
  - HEART RATE INCREASED [None]
  - SURGICAL PROCEDURE REPEATED [None]
